FAERS Safety Report 14930194 (Version 2)
Quarter: 2018Q3

REPORT INFORMATION
  Report Type: Report from Study
  Country: PE (occurrence: PE)
  Receive Date: 20180523
  Receipt Date: 20180809
  Transmission Date: 20181010
  Serious: Yes (Life-Threatening, Hospitalization)
  Sender: FDA-Public Use
  Company Number: PHHY2018PE053963

PATIENT
  Age: 33 Year
  Sex: Female

DRUGS (4)
  1. DEXAMETHASONE. [Concomitant]
     Active Substance: DEXAMETHASONE
     Indication: PRODUCT USED FOR UNKNOWN INDICATION
     Dosage: UNK
     Route: 065
  2. REVOLADE [Suspect]
     Active Substance: ELTROMBOPAG
     Dosage: 50 MG, QD
     Route: 048
     Dates: start: 20180213, end: 201806
  3. REVOLADE [Suspect]
     Active Substance: ELTROMBOPAG
     Dosage: 50 MG, QD
     Route: 048
     Dates: start: 20180723
  4. REVOLADE [Suspect]
     Active Substance: ELTROMBOPAG
     Indication: PRODUCT USED FOR UNKNOWN INDICATION
     Dosage: 50 MG, QD (IN THE MORNING)
     Route: 048
     Dates: start: 20180206

REACTIONS (10)
  - Petechiae [Recovering/Resolving]
  - Vitamin C deficiency [Recovering/Resolving]
  - Platelet count decreased [Recovering/Resolving]
  - Menorrhagia [Unknown]
  - Anaemia [Recovering/Resolving]
  - Menstrual disorder [Recovering/Resolving]
  - Headache [Recovering/Resolving]
  - Drug ineffective [Not Recovered/Not Resolved]
  - Haemoglobin decreased [Recovering/Resolving]
  - Alopecia [Recovering/Resolving]

NARRATIVE: CASE EVENT DATE: 20180302
